FAERS Safety Report 8283791-1 (Version None)
Quarter: 2012Q2

REPORT INFORMATION
  Report Type: 
  Country: None (occurrence: None)
  Receive Date: 20120413
  Receipt Date: 20120210
  Transmission Date: 20120825
  Serious: No
  Sender: FDA-Public Use
  Company Number: US-ASTRAZENECA-2012SE09244

PATIENT
  Sex: Male

DRUGS (8)
  1. SEROQUEL [Suspect]
     Indication: SLEEP DISORDER
     Route: 048
  2. PRESCRIPTION TESTOSTERONE [Concomitant]
  3. TRAZIDONE [Concomitant]
  4. PRESCRIPTION VITAMIN D [Concomitant]
     Dosage: 50000 UNITS PER MONTH
  5. ULTRAM 24HOURS EXTENDED RELEASE [Concomitant]
  6. HYDROCODONE BITARTRATE [Concomitant]
     Dosage: 10 3/25
  7. CYCLOBENZIPRINE [Concomitant]
  8. NEXIUM [Suspect]
     Indication: GASTROOESOPHAGEAL REFLUX DISEASE
     Route: 048

REACTIONS (7)
  - SOMNOLENCE [None]
  - FEELING ABNORMAL [None]
  - ASTHENIA [None]
  - OFF LABEL USE [None]
  - DRUG EFFECT PROLONGED [None]
  - DRUG DOSE OMISSION [None]
  - SEDATION [None]
